FAERS Safety Report 11428937 (Version 1)
Quarter: 2015Q3

REPORT INFORMATION
  Report Type: Spontaneous
  Country: US (occurrence: US)
  Receive Date: 20150828
  Receipt Date: 20150828
  Transmission Date: 20151125
  Serious: No
  Sender: FDA-Public Use
  Company Number: US-ROCHE-1186065

PATIENT
  Age: 53 Year
  Sex: Female

DRUGS (4)
  1. TELAPREVIR [Suspect]
     Active Substance: TELAPREVIR
     Indication: CHRONIC HEPATITIS C
     Route: 065
  2. RIBASPHERE RIBAPAK [Suspect]
     Active Substance: RIBAVIRIN
     Indication: CHRONIC HEPATITIS C
     Route: 065
     Dates: start: 20120925
  3. COPEGUS [Suspect]
     Active Substance: RIBAVIRIN
     Indication: CHRONIC HEPATITIS C
     Route: 065
  4. PEGASYS [Suspect]
     Active Substance: PEGINTERFERON ALFA-2A
     Indication: CHRONIC HEPATITIS C
     Route: 058
     Dates: start: 20120925

REACTIONS (9)
  - Headache [Unknown]
  - Malaise [Unknown]
  - Bronchitis [Unknown]
  - Weight increased [Unknown]
  - Hypertension [Unknown]
  - Cough [Unknown]
  - Diarrhoea [Unknown]
  - Alopecia [Unknown]
  - Pyrexia [Unknown]

NARRATIVE: CASE EVENT DATE: 20130125
